FAERS Safety Report 9669261 (Version 2)
Quarter: 2013Q4

REPORT INFORMATION
  Report Type: Report from Study
  Country: DO (occurrence: DO)
  Receive Date: 20131105
  Receipt Date: 20131105
  Transmission Date: 20140711
  Serious: Yes (Other)
  Sender: FDA-Public Use
  Company Number: DO-NOVOPROD-385860

PATIENT
  Age: 32 Year
  Sex: Female
  Weight: 110.7 kg

DRUGS (3)
  1. INSULIN DETEMIR FLEXPEN [Suspect]
     Indication: GESTATIONAL DIABETES
     Dosage: 8 IU, QD
     Route: 058
     Dates: start: 20130806
  2. EUTIROX [Concomitant]
     Dosage: 125 MG, QD
     Route: 048
     Dates: start: 2002
  3. PROGESTERONE [Concomitant]
     Dosage: 100 MG, QD
     Dates: start: 2002

REACTIONS (2)
  - Premature delivery [Recovered/Resolved]
  - Exposure during pregnancy [Recovered/Resolved]
